FAERS Safety Report 11360080 (Version 1)
Quarter: 2015Q3

REPORT INFORMATION
  Report Type: Spontaneous
  Country: GB (occurrence: GB)
  Receive Date: 20150810
  Receipt Date: 20150810
  Transmission Date: 20151125
  Serious: Yes (Life-Threatening, Hospitalization)
  Sender: FDA-Public Use
  Company Number: GB-AUROBINDO-AUR-APL-2015-06648

PATIENT
  Age: 13 Year
  Sex: Female
  Weight: 45 kg

DRUGS (3)
  1. ASPIRIN. [Suspect]
     Active Substance: ASPIRIN
     Indication: PRODUCT USED FOR UNKNOWN INDICATION
     Dosage: 225 MG, UNK
     Route: 065
  2. FLECAINIDE [Suspect]
     Active Substance: FLECAINIDE
     Indication: PRODUCT USED FOR UNKNOWN INDICATION
     Dosage: 900 MG, UNK
     Route: 065
  3. BISOPROLOL [Suspect]
     Active Substance: BISOPROLOL
     Indication: PRODUCT USED FOR UNKNOWN INDICATION
     Dosage: 25 MG, UNK
     Route: 065

REACTIONS (13)
  - Liver injury [Recovered/Resolved]
  - Alanine aminotransferase increased [Recovered/Resolved]
  - Sinus tachycardia [Recovered/Resolved]
  - Bundle branch block right [Recovered/Resolved]
  - Ventricular fibrillation [Recovered/Resolved]
  - Brugada syndrome [Recovered/Resolved]
  - Aspartate aminotransferase increased [Recovered/Resolved]
  - Cardiac arrest [Recovered/Resolved]
  - Hypotension [Recovered/Resolved]
  - Atrioventricular block [Recovered/Resolved]
  - Cardiovascular disorder [Recovered/Resolved]
  - Torsade de pointes [Recovered/Resolved]
  - Overdose [Recovered/Resolved]
